FAERS Safety Report 7308724-3 (Version None)
Quarter: 2011Q1

REPORT INFORMATION
  Report Type: 
  Country: None (occurrence: None)
  Receive Date: 20110223
  Receipt Date: 20110211
  Transmission Date: 20110831
  Serious: Yes (Other)
  Sender: FDA-Public Use
  Company Number: PHEH2008US06121

PATIENT
  Sex: Female

DRUGS (13)
  1. AYGESTIN [Suspect]
     Indication: HORMONE REPLACEMENT THERAPY
     Dosage: UNK
     Dates: start: 19920101, end: 20010101
  2. PREMARIN [Suspect]
     Dosage: 625 MG / DAILY
     Dates: end: 19910101
  3. CODEINE [Concomitant]
     Indication: LABILE HYPERTENSION
     Dosage: UNK
  4. PROVERA [Suspect]
     Indication: HORMONE REPLACEMENT THERAPY
     Dosage: 2.5 MG / DAILY
     Dates: start: 19920101, end: 20010101
  5. TYLENOL [Concomitant]
     Indication: MIGRAINE
  6. CODEINE [Concomitant]
     Indication: MIGRAINE
  7. VIBRAMYCIN [Concomitant]
     Dosage: 100 MG / BID
     Route: 048
     Dates: start: 19920220
  8. ESTRADIOL [Suspect]
     Dosage: UNK
     Dates: start: 19920101, end: 20010101
  9. TYLENOL [Concomitant]
     Indication: LABILE HYPERTENSION
     Dosage: UNK
  10. NORLUTATE [Suspect]
     Indication: HORMONE REPLACEMENT THERAPY
     Dosage: .25 MG
     Dates: start: 19920101, end: 20010101
  11. ESTRADERM [Suspect]
     Indication: HORMONE REPLACEMENT THERAPY
     Dosage: UNK
     Dates: start: 19920101, end: 20010101
  12. OGEN [Suspect]
     Indication: HORMONE REPLACEMENT THERAPY
     Dosage: UNK
     Dates: start: 19920101, end: 20010101
  13. PREMPRO [Suspect]
     Indication: HORMONE REPLACEMENT THERAPY
     Dosage: UNK
     Dates: start: 19920101, end: 20010101

REACTIONS (11)
  - PNEUMONIA [None]
  - MENORRHAGIA [None]
  - BREAST CANCER [None]
  - BREAST CANCER IN SITU [None]
  - BREAST NECROSIS [None]
  - LABILE HYPERTENSION [None]
  - BREAST HYPERPLASIA [None]
  - BREAST CALCIFICATIONS [None]
  - UTERINE LEIOMYOMA [None]
  - MIGRAINE [None]
  - FALLOPIAN TUBE DISORDER [None]
